FAERS Safety Report 6421381-3 (Version None)
Quarter: 2009Q4

REPORT INFORMATION
  Report Type: 
  Country: None (occurrence: None)
  Receive Date: 20091030
  Receipt Date: 20091026
  Transmission Date: 20100525
  Serious: Yes (Other)
  Sender: FDA-Public Use
  Company Number: PHHY2009DE46599

PATIENT
  Sex: Female

DRUGS (2)
  1. SANDOSTATIN LAR [Suspect]
     Indication: CARCINOID SYNDROME
     Dosage: 30 MG MONTHLY
     Dates: start: 20080101
  2. SANDOSTATIN [Suspect]
     Indication: CARCINOID SYNDROME
     Dosage: 2X200 UG/DAY
     Route: 058
     Dates: start: 20080101

REACTIONS (2)
  - PARKINSON'S DISEASE [None]
  - TRANSIENT PSYCHOSIS [None]
